FAERS Safety Report 6446281-4 (Version None)
Quarter: 2009Q4

REPORT INFORMATION
  Report Type: 
  Country: None (occurrence: None)
  Receive Date: 20091119
  Receipt Date: 20091112
  Transmission Date: 20100525
  Serious: Yes (Death, Hospitalization)
  Sender: FDA-Public Use
  Company Number: FR-ROCHE-668664

PATIENT
  Sex: Male

DRUGS (11)
  1. CAPECITABINE [Suspect]
     Route: 048
  2. EPIRUBICIN [Suspect]
     Route: 042
  3. CISPLATIN [Suspect]
     Route: 042
  4. IRINOTECAN HCL [Suspect]
     Route: 042
     Dates: start: 20080918, end: 20081023
  5. IRINOTECAN HCL [Suspect]
     Route: 042
     Dates: start: 20081204
  6. ELVORINE [Suspect]
     Route: 042
     Dates: start: 20080918, end: 20081023
  7. ELVORINE [Suspect]
     Route: 042
     Dates: start: 20081204
  8. FLUOROURACIL [Suspect]
     Route: 042
     Dates: start: 20080918, end: 20081023
  9. FLUOROURACIL [Suspect]
     Route: 042
     Dates: start: 20080918, end: 20081024
  10. FLUOROURACIL [Suspect]
     Route: 042
     Dates: start: 20081204
  11. FLUOROURACIL [Suspect]
     Route: 042
     Dates: start: 20081204

REACTIONS (3)
  - FEBRILE BONE MARROW APLASIA [None]
  - GENERAL PHYSICAL HEALTH DETERIORATION [None]
  - SMALL INTESTINAL OBSTRUCTION [None]
